FAERS Safety Report 21207971 (Version 1)
Quarter: 2022Q3

REPORT INFORMATION
  Report Type: Spontaneous
  Country: US (occurrence: US)
  Receive Date: 20220812
  Receipt Date: 20220812
  Transmission Date: 20221027
  Serious: No
  Sender: FDA-Public Use
  Company Number: US-PFIZER INC-PV202200040944

PATIENT
  Age: 2 Year
  Sex: Female

DRUGS (2)
  1. EUCRISA [Suspect]
     Active Substance: CRISABOROLE
     Indication: Eczema
     Dosage: UNK, 2X/DAY
  2. EUCRISA [Suspect]
     Active Substance: CRISABOROLE
     Indication: Eczema eyelids

REACTIONS (2)
  - Impetigo [Unknown]
  - Scratch [Unknown]
